FAERS Safety Report 7318207-2 (Version None)
Quarter: 2011Q1

REPORT INFORMATION
  Report Type: 
  Country: None (occurrence: None)
  Receive Date: 20110228
  Receipt Date: 20110216
  Transmission Date: 20110831
  Serious: No
  Sender: FDA-Public Use
  Company Number: US-BIOGENIDEC-2011BI006484

PATIENT
  Sex: Male

DRUGS (3)
  1. TYSABRI [Suspect]
     Route: 042
     Dates: start: 20090911, end: 20091106
  2. TYSABRI [Suspect]
     Indication: MULTIPLE SCLEROSIS
     Route: 042
     Dates: start: 20100803
  3. AVONEX [Concomitant]
     Indication: MULTIPLE SCLEROSIS
     Route: 030
     Dates: start: 20100105

REACTIONS (1)
  - DIZZINESS [None]
